FAERS Safety Report 14240458 (Version 2)
Quarter: 2018Q1

REPORT INFORMATION
  Report Type: Spontaneous
  Country: JP (occurrence: JP)
  Receive Date: 20171130
  Receipt Date: 20180320
  Transmission Date: 20180508
  Serious: Yes (Death, Other)
  Sender: FDA-Public Use
  Company Number: JP-SA-2017SA237026

PATIENT
  Age: 80 Year
  Sex: Male

DRUGS (11)
  1. SODIUM PICOSULFATE [Concomitant]
     Active Substance: SODIUM PICOSULFATE
     Indication: CONSTIPATION
     Dosage: FORM:- SOLUTION
     Route: 048
  2. UFT [Concomitant]
     Active Substance: TEGAFUR\URACIL
     Route: 048
  3. LUMIGAN [Concomitant]
     Active Substance: BIMATOPROST
     Dosage: EYE DROPS
     Route: 047
  4. OLMETEC [Concomitant]
     Active Substance: OLMESARTAN MEDOXOMIL
     Route: 048
  5. ALOSITOL [Concomitant]
     Active Substance: ALLOPURINOL
     Route: 048
  6. PLAVIX [Suspect]
     Active Substance: CLOPIDOGREL BISULFATE
     Indication: CEREBRAL INFARCTION
     Route: 048
     Dates: start: 20151107, end: 20160818
  7. LIXIANA [Suspect]
     Active Substance: EDOXABAN TOSYLATE
     Indication: DEEP VEIN THROMBOSIS
     Route: 048
     Dates: end: 20160818
  8. PLAVIX [Suspect]
     Active Substance: CLOPIDOGREL BISULFATE
     Indication: BRAIN STEM INFARCTION
     Route: 048
     Dates: start: 20151107, end: 20160818
  9. ARTIST [Concomitant]
     Active Substance: CARVEDILOL
     Route: 048
  10. NICORANDIL [Concomitant]
     Active Substance: NICORANDIL
     Route: 048
  11. TRUSOPT [Concomitant]
     Active Substance: DORZOLAMIDE HYDROCHLORIDE
     Dosage: EYE DROPS
     Route: 047

REACTIONS (3)
  - Pituitary haemorrhage [Recovering/Resolving]
  - Headache [Recovering/Resolving]
  - Nausea [Recovering/Resolving]

NARRATIVE: CASE EVENT DATE: 20160816
